FAERS Safety Report 10837199 (Version 1)
Quarter: 2015Q1

REPORT INFORMATION
  Report Type: Report from Study
  Country: US (occurrence: US)
  Receive Date: 20150219
  Receipt Date: 20150219
  Transmission Date: 20150721
  Serious: No
  Sender: FDA-Public Use
  Company Number: US-ABBVIE-14P-163-1218975-00

PATIENT
  Sex: Female

DRUGS (2)
  1. HUMIRA [Suspect]
     Active Substance: ADALIMUMAB
     Indication: CROHN^S DISEASE
     Dates: start: 20140226, end: 20140226
  2. HUMIRA [Suspect]
     Active Substance: ADALIMUMAB
     Dates: start: 20140312, end: 20140312

REACTIONS (1)
  - Fatigue [Unknown]
